FAERS Safety Report 15489525 (Version 1)
Quarter: 2018Q4

REPORT INFORMATION
  Report Type: Spontaneous
  Country: US (occurrence: US)
  Receive Date: 20181004
  Receipt Date: 20181004
  Transmission Date: 20190205
  Serious: No
  Sender: FDA-Public Use
  Company Number: None

PATIENT
  Age: 59 Year
  Sex: Female

DRUGS (1)
  1. ENBREL [Suspect]
     Active Substance: ETANERCEPT
     Route: 058
     Dates: start: 201802, end: 201809

REACTIONS (4)
  - Gastric operation [None]
  - Angioedema [None]
  - Therapy cessation [None]
  - Injection site bruising [None]

NARRATIVE: CASE EVENT DATE: 20180808
